FAERS Safety Report 8634564 (Version 3)
Quarter: 2012Q4

REPORT INFORMATION
  Report Type: Report from Study
  Country: US (occurrence: US)
  Receive Date: 20120626
  Receipt Date: 20121214
  Transmission Date: 20130627
  Serious: Yes (Hospitalization)
  Sender: FDA-Public Use
  Company Number: US-GENZYME-CAMP-1002210

PATIENT
  Age: 40 Year
  Sex: Female
  Weight: 67.8 kg

DRUGS (26)
  1. ALEMTUZUMAB [Suspect]
     Indication: MULTIPLE SCLEROSIS
     Dosage: 12 mg, qd
     Route: 042
     Dates: start: 20110622, end: 20110624
  2. METHYLPREDNISOLONE [Concomitant]
     Indication: MULTIPLE SCLEROSIS
     Dosage: 1 g, qd
     Route: 042
     Dates: start: 20110622, end: 20110624
  3. METHYLPREDNISOLONE [Concomitant]
     Indication: PRODUCT USED FOR UNKNOWN INDICATION
     Dosage: 1000 mg, qd
     Dates: start: 20120217, end: 20120221
  4. METHYLPREDNISOLONE [Concomitant]
     Indication: MULTIPLE SCLEROSIS RELAPSE
     Dosage: 1000 mg, qd
     Route: 042
     Dates: start: 20120415
  5. BACLOFEN [Concomitant]
     Indication: MUSCLE SPASMS
     Dosage: 60 mg, qd
     Route: 048
     Dates: start: 20091207
  6. VITAMIN B12 [Concomitant]
     Indication: MEDICAL DIET
     Dosage: 1 ml,Monthly
     Route: 048
     Dates: start: 200712
  7. AMBIEN [Concomitant]
     Indication: INSOMNIA
     Dosage: 10 mg, prn
     Route: 048
     Dates: start: 200901
  8. VALIUM [Concomitant]
     Indication: ANXIETY
     Dosage: 5 mg, prn
     Route: 048
     Dates: start: 20090721
  9. HYDROCODONE BITARTRATE AND ACETAMINOPHEN [Concomitant]
     Indication: PAIN
     Dosage: 5/500 mg, prn
     Route: 048
     Dates: start: 20100710
  10. FLEXERIL [Concomitant]
     Indication: PAIN
     Dosage: 10 mg, prn
     Route: 048
     Dates: start: 20110708
  11. ZOLOFT [Concomitant]
     Indication: ANXIETY
     Dosage: 100 mg, qd
     Route: 048
     Dates: start: 20110728
  12. OMEPRAZOLE [Concomitant]
     Indication: GASTROOESOPHAGEAL REFLUX DISEASE
     Dosage: 40 mg, qd
     Route: 048
     Dates: start: 20110722
  13. REGLAN [Concomitant]
     Indication: NAUSEA
     Dosage: 10 mg, tid
     Route: 048
     Dates: start: 20120401
  14. CALCIUM CARBONATE W [Concomitant]
     Indication: MEDICAL DIET
     Dosage: 600 mg, bid
     Route: 048
     Dates: start: 20110314
  15. DIAZEPAM [Concomitant]
     Indication: MUSCLE SPASMS
     Dosage: 5 mg, bid
     Route: 048
     Dates: start: 20120319
  16. FENTANYL [Concomitant]
     Indication: PAIN
     Dosage: 75 mcg, qd
     Route: 061
     Dates: start: 20120412
  17. CYMBALTA [Concomitant]
     Indication: PAIN
     Dosage: 30 mg, qd
     Route: 048
     Dates: start: 20120416
  18. ALBUTEROL [Concomitant]
     Indication: ASTHMA
     Dosage: 2 UNK, prn
     Route: 050
     Dates: start: 20090721
  19. ZOFRAN [Concomitant]
     Indication: VOMITING
     Dosage: 8 mg, prn
     Route: 048
  20. FERROUS GLUCONATE [Concomitant]
     Indication: MEDICAL DIET
     Dosage: 324 mg, qw
     Route: 048
     Dates: start: 20101110
  21. NITROGLYCERIN [Concomitant]
     Indication: ANGINA PECTORIS
     Dosage: 0.4 mg, prn
     Route: 048
     Dates: start: 20110314
  22. NEXIUM [Concomitant]
     Indication: GASTROOESOPHAGEAL REFLUX DISEASE
     Dosage: 40 mg, qd
     Route: 048
  23. NITROFURANTOIN [Concomitant]
     Indication: PRODUCT USED FOR UNKNOWN INDICATION
     Dosage: 30 mg, qd
     Route: 048
  24. TORADOL [Concomitant]
     Indication: PAIN
     Dosage: 30 mg, UNK
  25. PROCHLORPERAZINE [Concomitant]
     Indication: PAIN
     Dosage: 10 mg, UNK
  26. ATENOLOL [Concomitant]
     Indication: TREMOR
     Dosage: 25 mg, bid
     Route: 048

REACTIONS (1)
  - Hyperthyroidism [Not Recovered/Not Resolved]
